FAERS Safety Report 4427362-3 (Version None)
Quarter: 2004Q3

REPORT INFORMATION
  Report Type: 
  Country: None (occurrence: None)
  Receive Date: 20040816
  Receipt Date: 20040816
  Transmission Date: 20050211
  Serious: Yes (Other)
  Sender: FDA-Public Use
  Company Number: None

PATIENT
  Age: 14 Year
  Sex: Female
  Weight: 56.6996 kg

DRUGS (2)
  1. LEVAQUIN [Suspect]
     Indication: EAR INFECTION
     Dosage: 750 MG X 1
     Dates: start: 20040628
  2. CATAFLAM [Concomitant]

REACTIONS (10)
  - ARTHRALGIA [None]
  - DIZZINESS [None]
  - HEADACHE [None]
  - PAIN [None]
  - PAIN IN EXTREMITY [None]
  - RASH [None]
  - RHINORRHOEA [None]
  - SUNBURN [None]
  - SWELLING [None]
  - TENDON DISORDER [None]
